FAERS Safety Report 19999596 (Version 5)
Quarter: 2022Q2

REPORT INFORMATION
  Report Type: Spontaneous
  Country: DE (occurrence: DE)
  Receive Date: 20211027
  Receipt Date: 20220429
  Transmission Date: 20220721
  Serious: Yes (Other)
  Sender: FDA-Public Use
  Company Number: DE-002147023-PHHY2019DE198308

PATIENT
  Sex: Female
  Weight: 95 kg

DRUGS (4)
  1. LETROZOLE [Suspect]
     Active Substance: LETROZOLE
     Indication: Breast cancer metastatic
     Dosage: (LAST DOSE RECEIVED ON 02 DEC 2019)2.5 MG, QD
     Route: 048
     Dates: start: 20190617, end: 20191202
  2. IBRANCE [Suspect]
     Active Substance: PALBOCICLIB
     Indication: Product used for unknown indication
     Dosage: UNK
     Route: 065
     Dates: start: 20191213
  3. KISQALI [Suspect]
     Active Substance: RIBOCICLIB
     Indication: Breast cancer metastatic
     Dosage: (21 DAYS INTAKE, 7 DAYS PAUSE)
     Route: 048
     Dates: start: 20190617, end: 20191020
  4. KISQALI [Suspect]
     Active Substance: RIBOCICLIB
     Dosage: (21 DAYS INTAKE, 7 DAYS PAUSE)
     Route: 048
     Dates: start: 20191021, end: 20191202

REACTIONS (4)
  - Neutropenia [Recovering/Resolving]
  - Neutropenia [Recovering/Resolving]
  - Leukopenia [Recovering/Resolving]
  - Leukopenia [Recovered/Resolved]

NARRATIVE: CASE EVENT DATE: 20190701
